FAERS Safety Report 15307739 (Version 2)
Quarter: 2018Q3

REPORT INFORMATION
  Report Type: Spontaneous
  Country: US (occurrence: US)
  Receive Date: 20180822
  Receipt Date: 20180831
  Transmission Date: 20181010
  Serious: Yes (Hospitalization, Congenital Anomaly, Other)
  Sender: FDA-Public Use
  Company Number: US-TELIGENT, INC-IGIL20180468

PATIENT
  Sex: Male

DRUGS (14)
  1. ZANTAC [Suspect]
     Active Substance: RANITIDINE HYDROCHLORIDE
     Indication: DIVERTICULITIS
  2. ZANTAC [Suspect]
     Active Substance: RANITIDINE HYDROCHLORIDE
     Indication: COLITIS ULCERATIVE
     Dosage: UNKNOWN
     Route: 065
  3. PREVACID 24 HR [Suspect]
     Active Substance: LANSOPRAZOLE
     Indication: COLITIS ULCERATIVE
     Dosage: 30 MG
     Route: 065
  4. TAGAMET [Suspect]
     Active Substance: CIMETIDINE
     Indication: DIVERTICULITIS
  5. PROTONIX [Suspect]
     Active Substance: PANTOPRAZOLE SODIUM
     Indication: PRODUCT USED FOR UNKNOWN INDICATION
     Dosage: 40 MG
     Route: 065
     Dates: start: 2000, end: 2009
  6. TAGAMET HB [Suspect]
     Active Substance: CIMETIDINE
     Indication: DIVERTICULITIS
  7. TAGAMET HB [Suspect]
     Active Substance: CIMETIDINE
     Indication: COLITIS ULCERATIVE
     Dosage: 200 MG
     Route: 048
  8. PREVACID 24 HR [Suspect]
     Active Substance: LANSOPRAZOLE
     Indication: DIVERTICULITIS
  9. NEXIUM [Suspect]
     Active Substance: ESOMEPRAZOLE MAGNESIUM
     Indication: PRODUCT USED FOR UNKNOWN INDICATION
     Dosage: 40 MG
     Route: 048
     Dates: start: 2010, end: 2010
  10. OMEPRAZOLE. [Suspect]
     Active Substance: OMEPRAZOLE
     Indication: PRODUCT USED FOR UNKNOWN INDICATION
     Dosage: 40 MG
     Route: 065
     Dates: start: 2014, end: 2015
  11. PROTONIX [Suspect]
     Active Substance: PANTOPRAZOLE SODIUM
     Dosage: 40 MG
     Route: 065
     Dates: start: 2011, end: 2011
  12. TAGAMET [Suspect]
     Active Substance: CIMETIDINE
     Indication: COLITIS ULCERATIVE
     Dosage: UNKNOWN
     Route: 065
     Dates: start: 1973, end: 1999
  13. PRILOSEC [Suspect]
     Active Substance: OMEPRAZOLE MAGNESIUM
     Indication: PRODUCT USED FOR UNKNOWN INDICATION
     Dosage: 40 MG
     Route: 065
     Dates: start: 2014
  14. PANTOPRAZOLE SODIUM. [Suspect]
     Active Substance: PANTOPRAZOLE SODIUM
     Indication: PRODUCT USED FOR UNKNOWN INDICATION
     Dosage: 40 MG
     Route: 065
     Dates: start: 2008, end: 2011

REACTIONS (10)
  - Acute kidney injury [Unknown]
  - Chronic kidney disease [Not Recovered/Not Resolved]
  - Congenital renal disorder [Unknown]
  - Renal impairment [Unknown]
  - Nephrolithiasis [Unknown]
  - Urethral stenosis [Unknown]
  - Renal failure [Unknown]
  - Diabetic nephropathy [Unknown]
  - Renal disorder [Unknown]
  - Hypertensive nephropathy [Unknown]

NARRATIVE: CASE EVENT DATE: 2009
